FAERS Safety Report 5623447-4 (Version None)
Quarter: 2008Q1

REPORT INFORMATION
  Report Type: 
  Country: None (occurrence: None)
  Receive Date: 20080207
  Receipt Date: 20080130
  Transmission Date: 20080703
  Serious: Yes (Other)
  Sender: FDA-Public Use
  Company Number: 2008SP002314

PATIENT
  Age: 50 Year
  Sex: Male

DRUGS (4)
  1. RIBAVIRIN [Suspect]
     Dosage: PO
     Route: 048
     Dates: start: 20010101, end: 20010101
  2. RIBAVIRIN [Suspect]
     Dosage: PO
     Route: 048
     Dates: start: 20080125
  3. PEGASYS [Suspect]
     Indication: HEPATITIS C
     Dates: start: 20010101, end: 20010101
  4. PEGASYS [Suspect]
     Indication: HEPATITIS C
     Dates: start: 20080125

REACTIONS (4)
  - DISEASE RECURRENCE [None]
  - HEPATIC CIRRHOSIS [None]
  - HEPATITIS C [None]
  - PORTAL HYPERTENSION [None]
